FAERS Safety Report 8399505-0 (Version None)
Quarter: 2012Q2

REPORT INFORMATION
  Report Type: 
  Country: None (occurrence: None)
  Receive Date: 20120323
  Receipt Date: 20111110
  Transmission Date: 20120825
  Serious: Yes (Hospitalization)
  Sender: FDA-Public Use
  Company Number: 163-21880-11012006

PATIENT
  Age: 70 Year
  Sex: Male

DRUGS (5)
  1. RITUXAN (RITUXIMAB)(UNKNOWN) [Concomitant]
  2. DECADRON (DEXAMETHASONE)(UNKNOWN) [Concomitant]
  3. REVLIMID [Suspect]
  4. REVLIMID [Suspect]
     Indication: NON-HODGKIN'S LYMPHOMA
     Dosage: 25 MG, DAILY X 21 DAYS Q 28 DAYS,PO, 25 MG, MTWF,PO
     Route: 048
     Dates: start: 20101218
  5. REVLIMID [Suspect]
     Indication: NON-HODGKIN'S LYMPHOMA
     Dosage: 25 MG, DAILY X 21 DAYS Q 28 DAYS,PO, 25 MG, MTWF,PO
     Route: 048
     Dates: start: 20110101

REACTIONS (6)
  - MUSCLE SPASMS [None]
  - PRURITUS [None]
  - WEIGHT DECREASED [None]
  - WHITE BLOOD CELL COUNT DECREASED [None]
  - COUGH [None]
  - DIARRHOEA [None]
